FAERS Safety Report 8998672 (Version 1)
Quarter: 2013Q1

REPORT INFORMATION
  Report Type: Spontaneous
  Country: DK (occurrence: GB)
  Receive Date: 20130103
  Receipt Date: 20130103
  Transmission Date: 20140127
  Serious: Yes (Other)
  Sender: FDA-Public Use
  Company Number: GB-FRI-1000041344

PATIENT
  Age: 19 Year
  Sex: Male
  Weight: 71 kg

DRUGS (1)
  1. CITALOPRAM [Suspect]
     Route: 048

REACTIONS (2)
  - Mental disorder [Unknown]
  - Obsessive-compulsive disorder [Unknown]
